FAERS Safety Report 24961927 (Version 1)
Quarter: 2025Q1

REPORT INFORMATION
  Report Type: Spontaneous
  Country: CN (occurrence: CN)
  Receive Date: 20250212
  Receipt Date: 20250212
  Transmission Date: 20250409
  Serious: Yes (Other)
  Sender: PFIZER
  Company Number: CN-PFIZER INC-PV202500015321

PATIENT
  Age: 65 Year
  Sex: Female
  Weight: 48.45 kg

DRUGS (3)
  1. CYTARABINE [Suspect]
     Active Substance: CYTARABINE
     Indication: Acute lymphocytic leukaemia
     Dosage: 3 G, 2X/DAY (3G Q12H D2-3)
     Route: 041
     Dates: start: 20250107, end: 20250109
  2. METHOTREXATE [Concomitant]
     Active Substance: METHOTREXATE
     Indication: Acute lymphocytic leukaemia
     Dosage: 300 MG, 1X/DAY
     Route: 041
     Dates: start: 20250106, end: 20250106
  3. METHOTREXATE [Concomitant]
     Active Substance: METHOTREXATE
     Dosage: 1100 MG, 1X/DAY
     Route: 041
     Dates: start: 20250106, end: 20250106

REACTIONS (1)
  - Palmar-plantar erythrodysaesthesia syndrome [Recovering/Resolving]

NARRATIVE: CASE EVENT DATE: 20250110
